FAERS Safety Report 20761076 (Version 1)
Quarter: 2022Q2

REPORT INFORMATION
  Report Type: Report from Study
  Country: JP (occurrence: JP)
  Receive Date: 20220428
  Receipt Date: 20220428
  Transmission Date: 20220721
  Serious: Yes (Hospitalization, Other)
  Sender: FDA-Public Use
  Company Number: JP-CELLTRION INC.-2022JP005083

PATIENT

DRUGS (4)
  1. INFLIXIMAB-DYYB [Suspect]
     Active Substance: INFLIXIMAB-DYYB
     Indication: Rheumatoid arthritis
     Dosage: 300 MILLIGRAM, QD
     Route: 041
     Dates: start: 20161124, end: 20161124
  2. METHOTREXATE [Concomitant]
     Active Substance: METHOTREXATE
     Indication: Rheumatoid arthritis
  3. FOLIC ACID [Concomitant]
     Active Substance: FOLIC ACID
     Indication: Prophylaxis
     Dosage: UNK
     Dates: start: 20080604
  4. ISCOTIN [Concomitant]
     Active Substance: ISONIAZID
     Indication: Antibiotic prophylaxis
     Dosage: UNK
     Dates: start: 20080604

REACTIONS (2)
  - Cerebral haemorrhage [Recovered/Resolved]
  - Overdose [Unknown]

NARRATIVE: CASE EVENT DATE: 20161201
